FAERS Safety Report 9878566 (Version 3)
Quarter: 2014Q2

REPORT INFORMATION
  Report Type: Spontaneous
  Country: US (occurrence: US)
  Receive Date: 20140206
  Receipt Date: 20140414
  Transmission Date: 20141212
  Serious: Yes (Hospitalization)
  Sender: FDA-Public Use
  Company Number: US-BRISTOL-MYERS SQUIBB COMPANY-20107207

PATIENT
  Age: 74 Year
  Sex: Female
  Weight: 63.49 kg

DRUGS (16)
  1. ORENCIA [Suspect]
     Indication: RHEUMATOID ARTHRITIS
     Dosage: START:SEP12-AUG13.10NOV12-06JUL13?LOT NO.2F71222EXP.APR15,2F69837 MAR15,2F69837 OCT14,2G71685 JUN15
     Route: 042
     Dates: start: 201207
  2. ABATACEPT SUBQ INJECTION 125MG/ML [Suspect]
     Indication: RHEUMATOID ARTHRITIS
     Dosage: JUL-2013
     Route: 058
     Dates: start: 201307
  3. NAPROXEN [Suspect]
  4. PREDNISONE [Concomitant]
     Dosage: REDUCED:15MG,10MG
  5. ZYRTEC [Concomitant]
  6. CETAPHIL [Concomitant]
  7. SPIRIVA [Concomitant]
     Dates: start: 20100106
  8. COMBIVENT [Concomitant]
     Dates: start: 20090921
  9. ADVAIR [Concomitant]
     Dosage: AS DIRECTED
     Dates: start: 20080107
  10. CITRACAL [Concomitant]
  11. CITRACAL + D [Concomitant]
  12. GABAPENTIN [Concomitant]
     Dates: start: 20130402
  13. DOXYCYCLINE HYCLATE [Concomitant]
     Route: 048
     Dates: start: 20130201
  14. CLONAZEPAM [Concomitant]
     Route: 048
     Dates: start: 20130201
  15. SINGULAIR [Concomitant]
     Route: 048
     Dates: start: 20130201
  16. ZOLOFT [Concomitant]
     Route: 048
     Dates: start: 20130201

REACTIONS (3)
  - Spinal fracture [Unknown]
  - Impaired healing [Unknown]
  - Rash vesicular [Recovered/Resolved]
